FAERS Safety Report 25025082 (Version 1)
Quarter: 2025Q1

REPORT INFORMATION
  Report Type: Spontaneous
  Country: US (occurrence: None)
  Receive Date: 20250228
  Receipt Date: 20250228
  Transmission Date: 20250409
  Serious: Yes (Other)
  Sender: FDA-CTU
  Company Number: None

PATIENT
  Age: 49 Year
  Sex: Male
  Weight: 86.4 kg

DRUGS (1)
  1. PYRIDOXINE\SEMAGLUTIDE [Suspect]
     Active Substance: PYRIDOXINE\SEMAGLUTIDE
     Route: 058

REACTIONS (3)
  - Skin ulcer [None]
  - Skin necrosis [None]
  - Staphylococcal skin infection [None]

NARRATIVE: CASE EVENT DATE: 20250227
